FAERS Safety Report 8460746-5 (Version None)
Quarter: 2012Q2

REPORT INFORMATION
  Report Type: 
  Country: None (occurrence: None)
  Receive Date: 20120622
  Receipt Date: 20120614
  Transmission Date: 20120825
  Serious: Yes (Hospitalization, Other)
  Sender: FDA-Public Use
  Company Number: FI-ABBOTT-12P-055-0914635-00

PATIENT

DRUGS (1)
  1. HUMIRA [Suspect]
     Indication: MATERNAL EXPOSURE TIMING UNSPECIFIED
     Route: 064

REACTIONS (7)
  - BLOOD BILIRUBIN INCREASED [None]
  - BLOOD BILIRUBIN ABNORMAL [None]
  - FOETAL EXPOSURE DURING PREGNANCY [None]
  - INFANTILE SPITTING UP [None]
  - FOETAL GROWTH RESTRICTION [None]
  - CRYING [None]
  - GASTROINTESTINAL DISORDER [None]
